FAERS Safety Report 5267807-2 (Version None)
Quarter: 2007Q1

REPORT INFORMATION
  Report Type: 
  Country: None (occurrence: None)
  Receive Date: 20070316
  Receipt Date: 20070304
  Transmission Date: 20070707
  Serious: Yes (Death, Other)
  Sender: FDA-Public Use
  Company Number: GB-PFIZER INC-2007018199

PATIENT
  Age: 70 Year
  Sex: Male

DRUGS (3)
  1. VIAGRA [Suspect]
     Route: 048
  2. FRUSEMIDE [Concomitant]
  3. PERINDOPRIL ERBUMINE [Concomitant]

REACTIONS (3)
  - ARTERIOSCLEROSIS CORONARY ARTERY [None]
  - INTENTIONAL DRUG MISUSE [None]
  - MYOCARDIAL INFARCTION [None]
